FAERS Safety Report 13227399 (Version 3)
Quarter: 2017Q1

REPORT INFORMATION
  Report Type: Report from Study
  Country: US (occurrence: US)
  Receive Date: 20170213
  Receipt Date: 20170301
  Transmission Date: 20170428
  Serious: Yes (Hospitalization)
  Sender: FDA-Public Use
  Company Number: US-EISAI MEDICAL RESEARCH-EC-2017-024852

PATIENT
  Age: 62 Year
  Sex: Female
  Weight: 55.34 kg

DRUGS (23)
  1. TRADJENTA [Concomitant]
     Active Substance: LINAGLIPTIN
  2. IBUPROFEN. [Concomitant]
     Active Substance: IBUPROFEN
  3. ERIBULIN [Suspect]
     Active Substance: ERIBULIN
     Indication: CLEAR CELL SARCOMA OF SOFT TISSUE
     Route: 041
     Dates: start: 20170113, end: 20170209
  4. ALPRAZOLAM. [Concomitant]
     Active Substance: ALPRAZOLAM
  5. TRAMADOL. [Concomitant]
     Active Substance: TRAMADOL
  6. ONDANSETRON [Concomitant]
     Active Substance: ONDANSETRON
  7. PANTOPRAZOLE [Concomitant]
     Active Substance: PANTOPRAZOLE SODIUM
  8. LENVATINIB [Suspect]
     Active Substance: LENVATINIB
     Indication: CLEAR CELL SARCOMA OF SOFT TISSUE
     Route: 048
     Dates: start: 20170114, end: 20170209
  9. FENOFIBRATE. [Concomitant]
     Active Substance: FENOFIBRATE
  10. CARAFATE [Concomitant]
     Active Substance: SUCRALFATE
  11. LORATADINE. [Concomitant]
     Active Substance: LORATADINE
  12. INVOKANA [Concomitant]
     Active Substance: CANAGLIFLOZIN
  13. DOXEPIN [Concomitant]
     Active Substance: DOXEPIN
  14. METOPROLOL. [Concomitant]
     Active Substance: METOPROLOL
  15. MORPHINE SULFATE. [Concomitant]
     Active Substance: MORPHINE SULFATE
  16. HYDROMORPHONE [Concomitant]
     Active Substance: HYDROMORPHONE
  17. BUTALBITAL-ACETAMINOPHEN-CAFFEINE [Concomitant]
  18. DULOXETINE. [Concomitant]
     Active Substance: DULOXETINE
  19. LYRICA [Concomitant]
     Active Substance: PREGABALIN
  20. GLIPIZIDE. [Concomitant]
     Active Substance: GLIPIZIDE
  21. LEVOTHYROXINE. [Concomitant]
     Active Substance: LEVOTHYROXINE
  22. LISINOPRIL. [Concomitant]
     Active Substance: LISINOPRIL
  23. SPIRONOLACTONE. [Concomitant]
     Active Substance: SPIRONOLACTONE

REACTIONS (3)
  - Abdominal pain [Unknown]
  - Deep vein thrombosis [Not Recovered/Not Resolved]
  - Pain in extremity [Unknown]

NARRATIVE: CASE EVENT DATE: 20170121
